FAERS Safety Report 5204672-3 (Version None)
Quarter: 2007Q1

REPORT INFORMATION
  Report Type: 
  Country: None (occurrence: None)
  Receive Date: 20070110
  Receipt Date: 20060612
  Transmission Date: 20070707
  Serious: No
  Sender: FDA-Public Use
  Company Number: US-BRISTOL-MYERS SQUIBB COMPANY-13409057

PATIENT
  Age: 21 Year
  Sex: Male

DRUGS (3)
  1. ABILIFY [Suspect]
     Indication: IMPULSE-CONTROL DISORDER
     Dates: end: 20060501
  2. LEXAPRO [Concomitant]
  3. ADDERALL 10 [Concomitant]

REACTIONS (1)
  - DYSTONIA [None]
